FAERS Safety Report 6669844-X (Version None)
Quarter: 2010Q2

REPORT INFORMATION
  Report Type: 
  Country: None (occurrence: None)
  Receive Date: 20100406
  Receipt Date: 20100112
  Transmission Date: 20101027
  Serious: No
  Sender: FDA-Public Use
  Company Number: US-ALLERGAN-0909184US

PATIENT
  Age: 60 Year
  Sex: Female

DRUGS (4)
  1. LATISSE [Suspect]
     Indication: GROWTH OF EYELASHES
     Dosage: UNK, QHS
     Route: 061
     Dates: start: 20090612, end: 20090629
  2. SIMVASTATIN [Concomitant]
  3. CAFERGOT [Concomitant]
  4. EYE DROPS [Concomitant]
     Indication: DRY EYE
     Dosage: UNK

REACTIONS (1)
  - MADAROSIS [None]
